FAERS Safety Report 7100082-2 (Version None)
Quarter: 2010Q4

REPORT INFORMATION
  Report Type: 
  Country: None (occurrence: None)
  Receive Date: 20101112
  Receipt Date: 20091023
  Transmission Date: 20110411
  Serious: No
  Sender: FDA-Public Use
  Company Number: A0813171A

PATIENT
  Age: 75 Year
  Sex: Female

DRUGS (4)
  1. CARVEDILOL [Suspect]
     Dosage: 6.25MG TWICE PER DAY
     Route: 048
     Dates: start: 20090101
  2. COREG [Suspect]
     Dosage: 6.25MG TWICE PER DAY
     Route: 048
     Dates: start: 20040101
  3. DIOVAN [Concomitant]
  4. SINGULAIR [Concomitant]

REACTIONS (1)
  - DYSPNOEA [None]
